FAERS Safety Report 12519865 (Version 1)
Quarter: 2016Q3

REPORT INFORMATION
  Report Type: Spontaneous
  Country: US (occurrence: US)
  Receive Date: 20160701
  Receipt Date: 20160701
  Transmission Date: 20161109
  Serious: No
  Sender: FDA-Public Use
  Company Number: US-LUPIN PHARMACEUTICALS INC.-E2B_00004737

PATIENT
  Sex: Female
  Weight: 67.19 kg

DRUGS (4)
  1. SIMVASTATIN TABLETS USP 20 MG [Suspect]
     Active Substance: SIMVASTATIN
     Indication: BLOOD CHOLESTEROL ABNORMAL
     Route: 048
     Dates: start: 20151202, end: 20151225
  2. BISOPROLOL-HCTZ [Concomitant]
     Indication: BLOOD PRESSURE INCREASED
     Dosage: 5 MG - 6.25 MG
     Route: 048
  3. BABY ASPIRIN [Concomitant]
     Active Substance: ASPIRIN
     Indication: BLOOD PRESSURE INCREASED
     Route: 048
  4. FOLIC ACID. [Concomitant]
     Active Substance: FOLIC ACID
     Indication: COELIAC DISEASE
     Route: 048

REACTIONS (4)
  - Pruritus [Not Recovered/Not Resolved]
  - Dermatitis herpetiformis [Not Recovered/Not Resolved]
  - Rash [Not Recovered/Not Resolved]
  - Skin burning sensation [Not Recovered/Not Resolved]
